FAERS Safety Report 4334539-4 (Version None)
Quarter: 2004Q2

REPORT INFORMATION
  Report Type: 
  Country: None (occurrence: None)
  Receive Date: 20040407
  Receipt Date: 20040326
  Transmission Date: 20050107
  Serious: Yes (Hospitalization)
  Sender: FDA-Public Use
  Company Number: DE-GLAXOSMITHKLINE-B0328127A

PATIENT
  Age: 65 Year
  Sex: Male
  Weight: 73 kg

DRUGS (3)
  1. TOPOTECAN [Suspect]
     Indication: SMALL CELL LUNG CANCER STAGE UNSPECIFIED
     Dosage: 1MGM2 PER DAY
     Route: 042
     Dates: start: 20031219, end: 20031223
  2. CISPLATIN [Suspect]
     Indication: SMALL CELL LUNG CANCER STAGE UNSPECIFIED
     Dosage: 75MGM2 PER DAY
     Route: 042
     Dates: start: 20031223, end: 20031223
  3. CLORAZEPATE DIPOTASSIUM [Concomitant]
     Indication: SLEEP DISORDER

REACTIONS (6)
  - DEHYDRATION [None]
  - FALL [None]
  - HEADACHE [None]
  - VERTIGO [None]
  - VOMITING [None]
  - WOUND [None]
